FAERS Safety Report 22023298 (Version 3)
Quarter: 2023Q1

REPORT INFORMATION
  Report Type: Report from Study
  Country: US (occurrence: US)
  Receive Date: 20230223
  Receipt Date: 20230307
  Transmission Date: 20230417
  Serious: No
  Sender: FDA-Public Use
  Company Number: US-002147023-NVSC2023US039180

PATIENT
  Sex: Female

DRUGS (2)
  1. ENTRESTO [Suspect]
     Active Substance: SACUBITRIL\VALSARTAN
     Indication: Product used for unknown indication
     Dosage: 1 DOSAGE FORM, BID (24/26 MG)
     Route: 048
  2. LOSARTAN [Concomitant]
     Active Substance: LOSARTAN
     Indication: Product used for unknown indication
     Route: 065

REACTIONS (7)
  - Back pain [Unknown]
  - Gait disturbance [Unknown]
  - Dysstasia [Unknown]
  - Dyspnoea [Unknown]
  - Wrong technique in product usage process [Not Recovered/Not Resolved]
  - Underdose [Not Recovered/Not Resolved]
  - Contraindicated product administered [Unknown]
